FAERS Safety Report 24213442 (Version 1)
Quarter: 2024Q3

REPORT INFORMATION
  Report Type: Spontaneous
  Country: JP (occurrence: JP)
  Receive Date: 20240815
  Receipt Date: 20240815
  Transmission Date: 20241016
  Serious: Yes (Life-Threatening, Hospitalization)
  Sender: PFIZER
  Company Number: JP-PFIZER INC-202400235457

PATIENT
  Age: 3 Decade
  Sex: Male
  Weight: 62.5 kg

DRUGS (2)
  1. INFLIXIMAB [Suspect]
     Active Substance: INFLIXIMAB
     Indication: Crohn^s disease
     Dosage: 300 MG Q8W
  2. MESALAMINE [Suspect]
     Active Substance: MESALAMINE
     Dosage: UNK

REACTIONS (1)
  - IgA nephropathy [Recovered/Resolved]
